FAERS Safety Report 9611573 (Version 4)
Quarter: 2013Q4

REPORT INFORMATION
  Report Type: Report from Study
  Country: AU (occurrence: AU)
  Receive Date: 20131010
  Receipt Date: 20131125
  Transmission Date: 20140711
  Serious: Yes (Disabling, Other)
  Sender: FDA-Public Use
  Company Number: PHHY2013AU112825

PATIENT
  Age: 70 Year
  Sex: Female

DRUGS (2)
  1. ACLASTA [Suspect]
     Dosage: 5 MG, UNK
     Route: 042
     Dates: start: 20110913
  2. ACLASTA [Suspect]
     Dosage: 5 MG, UNK
     Route: 042
     Dates: start: 20120925

REACTIONS (3)
  - Ankle fracture [Not Recovered/Not Resolved]
  - Weight bearing difficulty [Unknown]
  - Osteonecrosis [Not Recovered/Not Resolved]
